FAERS Safety Report 15415470 (Version 1)
Quarter: 2018Q3

REPORT INFORMATION
  Report Type: Report from Study
  Country: None (occurrence: RO)
  Receive Date: 20180921
  Receipt Date: 20180921
  Transmission Date: 20181010
  Serious: Yes (Death)
  Sender: FDA-Public Use
  Company Number: RO-ABBVIE-18S-135-2402287-00

PATIENT
  Age: 58 Year
  Sex: Female

DRUGS (13)
  1. TENAXUM [Concomitant]
     Active Substance: RILMENIDINE
     Indication: CARDIAC DISORDER
     Route: 048
  2. BETALOC ZOK [Concomitant]
     Active Substance: METOPROLOL SUCCINATE
     Indication: CARDIAC DISORDER
     Route: 048
  3. CORYOL [Concomitant]
     Active Substance: CARVEDILOL
     Indication: CARDIAC DISORDER
     Route: 048
  4. TERTENSIF [Concomitant]
     Active Substance: INDAPAMIDE
     Indication: CARDIAC DISORDER
     Route: 048
  5. ASPENTER [Concomitant]
     Active Substance: ASPIRIN
     Indication: CARDIAC DISORDER
     Route: 048
  6. VIEKIRAX [Suspect]
     Active Substance: OMBITASVIR\PARITAPREVIR\RITONAVIR
     Indication: HEPATIC CIRRHOSIS
  7. EXVIERA [Suspect]
     Active Substance: DASABUVIR
     Indication: HEPATITIS C
     Route: 048
     Dates: start: 20180619, end: 20180910
  8. NITROMINT [Concomitant]
     Active Substance: NITROGLYCERIN
     Indication: CARDIAC DISORDER
     Route: 048
  9. VIEKIRAX [Suspect]
     Active Substance: OMBITASVIR\PARITAPREVIR\RITONAVIR
     Indication: HEPATITIS C
     Route: 048
     Dates: start: 20180619, end: 20180910
  10. ATACAND [Concomitant]
     Active Substance: CANDESARTAN CILEXETIL
     Indication: CARDIAC DISORDER
     Route: 048
  11. EXVIERA [Suspect]
     Active Substance: DASABUVIR
     Indication: HEPATIC CIRRHOSIS
  12. DIUREX [Concomitant]
     Active Substance: AMILORIDE HYDROCHLORIDE\HYDROCHLOROTHIAZIDE
     Indication: CARDIAC DISORDER
     Dosage: FREQUENCY EVERY MONDAY AND FRIDAY
     Route: 048
  13. ZOMEN [Concomitant]
     Indication: CARDIAC DISORDER
     Route: 048

REACTIONS (9)
  - Death [Fatal]
  - Dizziness [Recovered/Resolved]
  - Vomiting [Recovered/Resolved]
  - Heart rate increased [Recovered/Resolved]
  - Vomiting [Recovered/Resolved]
  - Blood pressure abnormal [Not Recovered/Not Resolved]
  - Dizziness [Recovered/Resolved]
  - Fatigue [Recovering/Resolving]
  - Migraine [Recovering/Resolving]

NARRATIVE: CASE EVENT DATE: 20180624
